FAERS Safety Report 12375917 (Version 1)
Quarter: 2016Q2

REPORT INFORMATION
  Report Type: Spontaneous
  Country: US (occurrence: None)
  Receive Date: 20160516
  Receipt Date: 20160516
  Transmission Date: 20160815
  Serious: No
  Sender: FDA-Public Use
  Company Number: None

PATIENT
  Sex: Male

DRUGS (3)
  1. BRIMONIDINE [Suspect]
     Active Substance: BRIMONIDINE TARTRATE
  2. TRAVATAN Z [Suspect]
     Active Substance: TRAVOPROST
  3. LUMIGAN [Suspect]
     Active Substance: BIMATOPROST

REACTIONS (1)
  - Multiple allergies [None]
